FAERS Safety Report 10008926 (Version 2)
Quarter: 2014Q1

REPORT INFORMATION
  Report Type: Spontaneous
  Country: US (occurrence: US)
  Receive Date: 20140313
  Receipt Date: 20140313
  Transmission Date: 20141002
  Serious: Yes (Other)
  Sender: FDA-Public Use
  Company Number: US-INCYTE CORPORATION-2012IN001180

PATIENT
  Sex: Female

DRUGS (4)
  1. JAKAFI [Suspect]
     Indication: POLYCYTHAEMIA
     Dosage: 15 MG, BID
     Route: 048
     Dates: start: 20120523
  2. JAKAFI [Suspect]
     Dosage: 15 MG, QD
     Route: 048
  3. JAKAFI [Suspect]
     Dosage: 10 MG, BID
     Route: 048
  4. JAKAFI [Suspect]
     Dosage: 10 UNK, UNK

REACTIONS (6)
  - Thrombocytopenia [Unknown]
  - Asthenia [Unknown]
  - Dizziness [Unknown]
  - Fatigue [Not Recovered/Not Resolved]
  - Treatment noncompliance [Unknown]
  - Drug administration error [Not Recovered/Not Resolved]
